FAERS Safety Report 16227690 (Version 3)
Quarter: 2019Q2

REPORT INFORMATION
  Report Type: Spontaneous
  Country: US (occurrence: US)
  Receive Date: 20190423
  Receipt Date: 20190522
  Transmission Date: 20190711
  Serious: No
  Sender: FDA-Public Use
  Company Number: US-PFIZER INC-2019143067

PATIENT
  Age: 58 Year
  Sex: Male
  Weight: 132.6 kg

DRUGS (3)
  1. LYRICA [Suspect]
     Active Substance: PREGABALIN
     Dosage: 75 MG 1 - 2 BID
     Route: 048
  2. LYRICA [Suspect]
     Active Substance: PREGABALIN
     Indication: NEUROPATHY PERIPHERAL
     Dosage: 1-2 CAPSULE BID (TWICE A DAY) PRN (AS NEEDED)
     Route: 048
     Dates: start: 20190326
  3. LYRICA [Suspect]
     Active Substance: PREGABALIN
     Indication: NEURALGIA
     Dosage: 1 CAPSULE, TWICE A DAY
     Route: 048
     Dates: start: 20190508

REACTIONS (2)
  - Off label use [Unknown]
  - Product use issue [Unknown]

NARRATIVE: CASE EVENT DATE: 20190326
